FAERS Safety Report 5479718-8 (Version None)
Quarter: 2007Q4

REPORT INFORMATION
  Report Type: 
  Country: None (occurrence: None)
  Receive Date: 20071008
  Receipt Date: 20070928
  Transmission Date: 20080405
  Serious: Yes (Other)
  Sender: FDA-Public Use
  Company Number: CH-JNJFOC-20070905606

PATIENT
  Sex: Male

DRUGS (1)
  1. HALDOL DECANOAS [Suspect]
     Indication: AGGRESSION

REACTIONS (3)
  - EXTRAPYRAMIDAL DISORDER [None]
  - OROPHARYNGEAL SPASM [None]
  - TONGUE SPASM [None]
